FAERS Safety Report 8471790-6 (Version None)
Quarter: 2012Q2

REPORT INFORMATION
  Report Type: 
  Country: None (occurrence: None)
  Receive Date: 20120627
  Receipt Date: 20100607
  Transmission Date: 20120825
  Serious: Yes (Other)
  Sender: FDA-Public Use
  Company Number: KR-ROCHE-650012

PATIENT
  Age: 35 Year
  Sex: Male

DRUGS (1)
  1. AVASTIN [Suspect]
     Indication: CYSTOID MACULAR OEDEMA
     Dosage: 1.25 MG, UNK
     Route: 031

REACTIONS (4)
  - EYE INFLAMMATION [None]
  - EYE PAIN [None]
  - VISUAL ACUITY REDUCED [None]
  - VISION BLURRED [None]
